FAERS Safety Report 25474487 (Version 1)
Quarter: 2025Q2

REPORT INFORMATION
  Report Type: Spontaneous
  Country: MY (occurrence: MY)
  Receive Date: 20250624
  Receipt Date: 20250624
  Transmission Date: 20250717
  Serious: Yes (Other)
  Sender: NOVARTIS
  Company Number: MY-002147023-NVSC2025MY096333

PATIENT
  Age: 54 Year
  Sex: Male

DRUGS (1)
  1. TASIGNA [Suspect]
     Active Substance: NILOTINIB
     Indication: Chronic myeloid leukaemia
     Dosage: 300 MG, BID
     Route: 065

REACTIONS (10)
  - Advanced systemic mastocytosis [Unknown]
  - Bone marrow failure [Unknown]
  - Transformation to acute myeloid leukaemia [Unknown]
  - Mastocytic leukaemia [Unknown]
  - Myeloid leukaemia [Unknown]
  - Lethargy [Unknown]
  - Mastocytosis [Unknown]
  - Decreased appetite [Unknown]
  - Pyrexia [Unknown]
  - Drug ineffective [Unknown]

NARRATIVE: CASE EVENT DATE: 20240801
